FAERS Safety Report 8256739-3 (Version None)
Quarter: 2012Q2

REPORT INFORMATION
  Report Type: 
  Country: None (occurrence: None)
  Receive Date: 20120403
  Receipt Date: 20120330
  Transmission Date: 20120825
  Serious: Yes (Death)
  Sender: FDA-Public Use
  Company Number: VE-PFIZER INC-2012077979

PATIENT
  Age: 63 Year
  Sex: Male

DRUGS (2)
  1. PLAVIX [Concomitant]
     Dosage: UNK
  2. LIPITOR [Suspect]
     Dosage: UNK

REACTIONS (1)
  - TRACHEAL DEVIATION [None]
